FAERS Safety Report 14743181 (Version 1)
Quarter: 2018Q2

REPORT INFORMATION
  Report Type: Report from Study
  Country: JP (occurrence: JP)
  Receive Date: 20180410
  Receipt Date: 20180410
  Transmission Date: 20180711
  Serious: Yes (Death, Life-Threatening, Hospitalization, Disabling, Other)
  Sender: FDA-Public Use
  Company Number: JP-AMGEN-JPNNI2018047253

PATIENT
  Age: 67 Year
  Sex: Female

DRUGS (14)
  1. DEXAMETHASONE. [Concomitant]
     Active Substance: DEXAMETHASONE
     Dosage: UNK
     Dates: start: 20161129
  2. DEXAMETHASONE. [Concomitant]
     Active Substance: DEXAMETHASONE
     Dosage: UNK
     Dates: start: 20170111
  3. CARFILZOMIB [Suspect]
     Active Substance: CARFILZOMIB
     Indication: PLASMA CELL MYELOMA
     Dosage: 20 MG/BODY, UNK
     Route: 041
     Dates: start: 20161020, end: 20161021
  4. LENALIDOMIDE [Concomitant]
     Active Substance: LENALIDOMIDE
     Dosage: UNK
     Dates: start: 20161020, end: 20161102
  5. LENALIDOMIDE [Concomitant]
     Active Substance: LENALIDOMIDE
     Dosage: UNK
     Dates: start: 20161214, end: 20161220
  6. LENALIDOMIDE [Concomitant]
     Active Substance: LENALIDOMIDE
     Dosage: UNK
     Dates: start: 20170111, end: 20170111
  7. DEXAMETHASONE. [Concomitant]
     Active Substance: DEXAMETHASONE
     Dosage: UNK
     Dates: start: 20161214
  8. CARFILZOMIB [Suspect]
     Active Substance: CARFILZOMIB
     Dosage: 30 MG/BODY, UNK
     Route: 041
     Dates: start: 20161027, end: 20161028
  9. CARFILZOMIB [Suspect]
     Active Substance: CARFILZOMIB
     Dosage: 30 MG/BODY, UNK
     Route: 041
     Dates: start: 20161214, end: 20161214
  10. LENALIDOMIDE [Concomitant]
     Active Substance: LENALIDOMIDE
     Dosage: UNK
     Dates: start: 20161129, end: 20161205
  11. CARFILZOMIB [Suspect]
     Active Substance: CARFILZOMIB
     Dosage: 30 MG/BODY, UNK
     Route: 041
     Dates: start: 20161130, end: 20161201
  12. CARFILZOMIB [Suspect]
     Active Substance: CARFILZOMIB
     Dosage: 30 MG/BODY, UNK
     Route: 041
     Dates: start: 20170111, end: 20170112
  13. DEXAMETHASONE. [Concomitant]
     Active Substance: DEXAMETHASONE
     Dosage: UNK
     Dates: start: 20161020
  14. DEXAMETHASONE. [Concomitant]
     Active Substance: DEXAMETHASONE
     Dosage: UNK
     Dates: start: 20161027

REACTIONS (6)
  - Neutropenia [Recovered/Resolved]
  - Thrombocytopenia [Not Recovered/Not Resolved]
  - Cardiac failure [Not Recovered/Not Resolved]
  - Hepatic failure [Fatal]
  - Anaemia [Not Recovered/Not Resolved]
  - Hepatic function abnormal [Recovered/Resolved]

NARRATIVE: CASE EVENT DATE: 20161026
